FAERS Safety Report 24699355 (Version 2)
Quarter: 2025Q1

REPORT INFORMATION
  Report Type: Spontaneous
  Country: US (occurrence: US)
  Receive Date: 20241205
  Receipt Date: 20250113
  Transmission Date: 20250408
  Serious: Yes (Other)
  Sender: GRANULES PHARMACEUTICALS INC
  Company Number: US-GRANULES-US-2024GRASPO00614

PATIENT
  Age: 74 Year
  Sex: Female
  Weight: 187 kg

DRUGS (2)
  1. POTASSIUM CHLORIDE [Suspect]
     Active Substance: POTASSIUM CHLORIDE
     Indication: Product used for unknown indication
     Route: 065
     Dates: start: 20241030
  2. POTASSIUM CHLORIDE [Suspect]
     Active Substance: POTASSIUM CHLORIDE

REACTIONS (2)
  - Choking [Unknown]
  - Product solubility abnormal [Unknown]
